FAERS Safety Report 11229465 (Version 1)
Quarter: 2015Q2

REPORT INFORMATION
  Report Type: Spontaneous
  Country: IN (occurrence: IN)
  Receive Date: 20150630
  Receipt Date: 20150630
  Transmission Date: 20150821
  Serious: Yes (Other)
  Sender: FDA-Public Use
  Company Number: IN-MYLANLABS-2015M1021647

PATIENT

DRUGS (3)
  1. ITRACONAZOLE. [Concomitant]
     Active Substance: ITRACONAZOLE
     Indication: PHAEHYPHOMYCOSIS
     Route: 065
  2. POTASSIUM IODIDE [Suspect]
     Active Substance: POTASSIUM IODIDE
     Indication: PRODUCT USED FOR UNKNOWN INDICATION
     Route: 065
  3. TERBINAFINE [Suspect]
     Active Substance: TERBINAFINE
     Indication: PHAEHYPHOMYCOSIS
     Dosage: 250 MG/DAY
     Route: 065

REACTIONS (2)
  - Renal impairment [Recovering/Resolving]
  - Influenza like illness [Unknown]
